FAERS Safety Report 8098700-8 (Version None)
Quarter: 2012Q1

REPORT INFORMATION
  Report Type: 
  Country: None (occurrence: None)
  Receive Date: 20120131
  Receipt Date: 20120123
  Transmission Date: 20120608
  Serious: Yes (Death)
  Sender: FDA-Public Use
  Company Number: JP-CELGENEUS-087-21660-12011360

PATIENT
  Age: 70 Year
  Sex: Female
  Weight: 49 kg

DRUGS (10)
  1. RABEPRAZOLE SODIUM [Suspect]
     Indication: GASTRIC ULCER
     Dosage: 10 MILLIGRAM
     Route: 048
     Dates: start: 20111031, end: 20111228
  2. OXYCONTIN [Concomitant]
     Indication: CANCER PAIN
     Dosage: 20 MILLIGRAM
     Route: 048
     Dates: start: 20110809, end: 20111228
  3. DIGOXIN [Concomitant]
     Indication: ATRIAL FIBRILLATION
     Dosage: .0625 MILLIGRAM
     Route: 048
     Dates: start: 20111205, end: 20111228
  4. FIRSTCIN [Concomitant]
     Dosage: 3 GRAM
     Route: 065
     Dates: start: 20111224
  5. DIOVAN [Concomitant]
     Indication: HYPERTENSION
     Dosage: 80 MILLIGRAM
     Route: 048
     Dates: end: 20111228
  6. ABRAXANE [Suspect]
     Route: 041
     Dates: start: 20111205
  7. RABEPRAZOLE SODIUM [Suspect]
     Indication: GASTRITIS
  8. PRADAXA [Concomitant]
     Indication: ATRIAL FIBRILLATION
     Dosage: 300 MILLIGRAM
     Route: 048
     Dates: start: 20111029, end: 20111227
  9. EBRANTIL [Concomitant]
     Indication: TACHYCARDIA
     Dosage: 30 MILLIGRAM
     Route: 048
     Dates: start: 20111101, end: 20111228
  10. ABRAXANE [Suspect]
     Indication: BREAST CANCER METASTATIC
     Dosage: 200 MILLIGRAM
     Route: 041
     Dates: start: 20111115, end: 20111205

REACTIONS (4)
  - DIFFUSE ALVEOLAR DAMAGE [None]
  - PNEUMOCYSTIS JIROVECI PNEUMONIA [None]
  - CYTOMEGALOVIRUS INFECTION [None]
  - ASPERGILLOSIS [None]
